FAERS Safety Report 5452148-0 (Version None)
Quarter: 2007Q3

REPORT INFORMATION
  Report Type: 
  Country: None (occurrence: None)
  Receive Date: 20070912
  Receipt Date: 20070912
  Transmission Date: 20080115
  Serious: Yes (Other)
  Sender: FDA-Public Use
  Company Number: None

PATIENT
  Sex: Male

DRUGS (2)
  1. WELLBUTRIN XL [Suspect]
     Indication: ATTENTION DEFICIT/HYPERACTIVITY DISORDER
     Dosage: 1 TAB/DAY IN AM 8/24/07 (DATE OF PRESCRIPTION)
     Dates: start: 20070824
  2. WELLBUTRIN XL [Suspect]
     Indication: DEPRESSION
     Dosage: 1 TAB/DAY IN AM 8/24/07 (DATE OF PRESCRIPTION)
     Dates: start: 20070824

REACTIONS (2)
  - DRUG INEFFECTIVE [None]
  - PHARMACEUTICAL PRODUCT COMPLAINT [None]
